FAERS Safety Report 18471416 (Version 1)
Quarter: 2020Q4

REPORT INFORMATION
  Report Type: Report from Study
  Country: GB (occurrence: GB)
  Receive Date: 20201106
  Receipt Date: 20201106
  Transmission Date: 20210114
  Serious: Yes (Other)
  Sender: FDA-Public Use
  Company Number: GB-ROCHE-1503687

PATIENT

DRUGS (1)
  1. RITUXIMAB. [Suspect]
     Active Substance: RITUXIMAB
     Indication: ACUTE LEUKAEMIA
     Route: 065

REACTIONS (2)
  - Acute kidney injury [Recovered/Resolved]
  - Pancreatitis [Recovered/Resolved with Sequelae]

NARRATIVE: CASE EVENT DATE: 20130606
